FAERS Safety Report 5678399-8 (Version None)
Quarter: 2008Q1

REPORT INFORMATION
  Report Type: 
  Country: None (occurrence: None)
  Receive Date: 20080320
  Receipt Date: 20080317
  Transmission Date: 20080703
  Serious: Yes (Other)
  Sender: FDA-Public Use
  Company Number: 08032436

PATIENT
  Age: 52 Year
  Sex: Male
  Weight: 127.0072 kg

DRUGS (5)
  1. PHENYTOIN SODIUM [Suspect]
     Indication: EPILEPSY
     Dosage: 600MG, QD, ORAL
     Route: 048
  2. IBUPROFEN [Concomitant]
  3. ANTIHYERTENSIVES (UNK) [Concomitant]
  4. WELLBUTRIN [Concomitant]
  5. TESTOSTERONE [Concomitant]

REACTIONS (2)
  - CONVULSION [None]
  - PHARMACEUTICAL PRODUCT COMPLAINT [None]
